FAERS Safety Report 4968830-5 (Version None)
Quarter: 2006Q2

REPORT INFORMATION
  Report Type: 
  Country: None (occurrence: None)
  Receive Date: 20060411
  Receipt Date: 20060331
  Transmission Date: 20061013
  Serious: Yes (Hospitalization, Other)
  Sender: FDA-Public Use
  Company Number: US-JNJFOC-20060400089

PATIENT
  Sex: Male
  Weight: 85.28 kg

DRUGS (4)
  1. REMICADE [Suspect]
     Dosage: WEEK 0,2, 6,
     Route: 042
  2. PREDNISONE [Concomitant]
  3. DIOVAN [Concomitant]
  4. NORVASC [Concomitant]

REACTIONS (4)
  - PHARYNGITIS STREPTOCOCCAL [None]
  - SINUSITIS [None]
  - STAPHYLOCOCCAL INFECTION [None]
  - VARICES OESOPHAGEAL [None]
